FAERS Safety Report 11792250 (Version 1)
Quarter: 2015Q4

REPORT INFORMATION
  Report Type: Spontaneous
  Country: US (occurrence: US)
  Receive Date: 20151201
  Receipt Date: 20151201
  Transmission Date: 20160305
  Serious: Yes (Death, Other)
  Sender: FDA-Public Use
  Company Number: US-CELGENE-USA-2015117239

PATIENT

DRUGS (1)
  1. ABRAXANE [Suspect]
     Active Substance: PACLITAXEL
     Indication: COLORECTAL CANCER METASTATIC
     Dosage: 125 MILLIGRAM/SQ. METER
     Route: 065

REACTIONS (6)
  - Asthenia [Unknown]
  - Death [Fatal]
  - General physical health deterioration [Unknown]
  - Colorectal cancer metastatic [Unknown]
  - Neutropenia [Unknown]
  - Neuropathy peripheral [Unknown]
